FAERS Safety Report 6457573-7 (Version None)
Quarter: 2009Q4

REPORT INFORMATION
  Report Type: 
  Country: None (occurrence: None)
  Receive Date: 20091125
  Receipt Date: 20091116
  Transmission Date: 20100525
  Serious: Yes (Hospitalization)
  Sender: FDA-Public Use
  Company Number: PHHY2009BE46994

PATIENT
  Age: 72 Year
  Sex: Male

DRUGS (1)
  1. EXELON [Suspect]
     Dosage: 1.5 MG, BID
     Route: 048

REACTIONS (3)
  - AMNESIA [None]
  - BRADYCARDIA [None]
  - BRAIN HYPOXIA [None]
